FAERS Safety Report 9303100 (Version 2)
Quarter: 2013Q4

REPORT INFORMATION
  Report Type: Spontaneous
  Country: FR (occurrence: FR)
  Receive Date: 20130522
  Receipt Date: 20131004
  Transmission Date: 20140711
  Serious: Yes (Hospitalization)
  Sender: FDA-Public Use
  Company Number: FR-009507513-1305FRA009958

PATIENT
  Age: 2 Year
  Sex: Male

DRUGS (2)
  1. CELESTENE [Suspect]
     Indication: OTITIS MEDIA
     Dosage: UNK
     Route: 048
     Dates: start: 20130116, end: 20130124
  2. AUGMENTIN [Suspect]
     Indication: OTITIS MEDIA
     Dosage: UNK
     Route: 048
     Dates: start: 20130116, end: 20130124

REACTIONS (7)
  - Erythema [Recovered/Resolved]
  - Pyrexia [Recovered/Resolved]
  - Urticaria [Recovered/Resolved]
  - Arthralgia [Recovered/Resolved]
  - Oedema peripheral [Recovered/Resolved]
  - Oedema peripheral [Recovered/Resolved]
  - Localised oedema [Recovered/Resolved]
